FAERS Safety Report 9013994 (Version 2)
Quarter: 2013Q1

REPORT INFORMATION
  Report Type: Spontaneous
  Country: US (occurrence: US)
  Receive Date: 20130115
  Receipt Date: 20130125
  Transmission Date: 20140127
  Serious: Yes (Other)
  Sender: FDA-Public Use
  Company Number: US-PFIZER INC-2013016781

PATIENT
  Age: 23 Year
  Sex: Female
  Weight: 106 kg

DRUGS (2)
  1. CHANTIX [Suspect]
     Indication: SMOKING CESSATION THERAPY
     Dosage: 0.5 MG, 1X/DAY
     Route: 048
  2. CHANTIX [Suspect]
     Dosage: UNK, 1XDAY
     Route: 048

REACTIONS (6)
  - Mental disorder [Unknown]
  - Hallucination [Unknown]
  - Nightmare [Unknown]
  - Depression [Unknown]
  - Anxiety [Unknown]
  - Decreased appetite [Unknown]
